FAERS Safety Report 7199395-8 (Version None)
Quarter: 2010Q4

REPORT INFORMATION
  Report Type: 
  Country: None (occurrence: None)
  Receive Date: 20101228
  Receipt Date: 20101207
  Transmission Date: 20110411
  Serious: No
  Sender: FDA-Public Use
  Company Number: US-B.I. PHARMACEUTICALS,INC./RIDGEFIELD-2010-BP-14008BP

PATIENT
  Age: 61 Year
  Sex: Male

DRUGS (7)
  1. AGGRENOX [Suspect]
     Indication: ANXIETY
     Route: 048
     Dates: end: 20100801
  2. AGGRENOX [Suspect]
     Indication: CEREBROVASCULAR ACCIDENT PROPHYLAXIS
  3. SOTALOL HCL [Concomitant]
     Indication: HYPERTENSION
  4. LISINOPRIL [Concomitant]
     Indication: HYPERTENSION
  5. LORAZEPAM [Concomitant]
     Indication: ANXIETY
  6. DIGOXIN [Concomitant]
     Indication: ATRIAL FIBRILLATION
  7. METFORMIN HCL [Concomitant]
     Indication: DIABETES MELLITUS

REACTIONS (2)
  - HEADACHE [None]
  - PHOTOPSIA [None]
